FAERS Safety Report 11078016 (Version 4)
Quarter: 2015Q2

REPORT INFORMATION
  Report Type: Spontaneous
  Country: US (occurrence: US)
  Receive Date: 20150430
  Receipt Date: 20150615
  Transmission Date: 20150821
  Serious: Yes (Other)
  Sender: FDA-Public Use
  Company Number: US-ROCHE-1547416

PATIENT
  Age: 69 Year
  Sex: Female
  Weight: 58.1 kg

DRUGS (22)
  1. MIRCERA [Suspect]
     Active Substance: METHOXY POLYETHYLENE GLYCOL-EPOETIN BETA
     Route: 050
     Dates: start: 20150213
  2. EPOGEN [Concomitant]
     Active Substance: ERYTHROPOIETIN
     Route: 050
     Dates: start: 20141114, end: 20141204
  3. EPOGEN [Concomitant]
     Active Substance: ERYTHROPOIETIN
     Route: 050
     Dates: start: 20150102, end: 20150107
  4. EPOGEN [Concomitant]
     Active Substance: ERYTHROPOIETIN
     Route: 050
     Dates: start: 20141003, end: 20141007
  5. EPOGEN [Concomitant]
     Active Substance: ERYTHROPOIETIN
     Route: 050
     Dates: start: 20141012, end: 20141028
  6. EPOGEN [Concomitant]
     Active Substance: ERYTHROPOIETIN
     Route: 050
     Dates: start: 20141114, end: 20141214
  7. EPOGEN [Concomitant]
     Active Substance: ERYTHROPOIETIN
     Route: 050
     Dates: start: 20140912, end: 20140916
  8. EPOGEN [Concomitant]
     Active Substance: ERYTHROPOIETIN
     Route: 050
     Dates: start: 20141029, end: 20141106
  9. MIRCERA [Suspect]
     Active Substance: METHOXY POLYETHYLENE GLYCOL-EPOETIN BETA
     Indication: PRODUCT USED FOR UNKNOWN INDICATION
     Route: 050
     Dates: start: 20150130, end: 20150218
  10. EPOGEN [Concomitant]
     Active Substance: ERYTHROPOIETIN
     Route: 050
     Dates: start: 20140905, end: 20140909
  11. EPOGEN [Concomitant]
     Active Substance: ERYTHROPOIETIN
     Route: 050
     Dates: start: 20141008, end: 20141014
  12. EPOGEN [Concomitant]
     Active Substance: ERYTHROPOIETIN
     Route: 050
     Dates: start: 20141205, end: 20141231
  13. EPOGEN [Concomitant]
     Active Substance: ERYTHROPOIETIN
     Route: 050
     Dates: start: 20150225, end: 20150310
  14. EPOGEN [Concomitant]
     Active Substance: ERYTHROPOIETIN
     Route: 050
     Dates: start: 20150311, end: 20150324
  15. EPOGEN [Concomitant]
     Active Substance: ERYTHROPOIETIN
     Route: 050
     Dates: start: 20150220, end: 20150224
  16. EPOGEN [Concomitant]
     Active Substance: ERYTHROPOIETIN
     Route: 050
     Dates: start: 20150325, end: 20150414
  17. EPOGEN [Concomitant]
     Active Substance: ERYTHROPOIETIN
     Route: 050
     Dates: start: 20140623, end: 20140628
  18. EPOGEN [Concomitant]
     Active Substance: ERYTHROPOIETIN
     Route: 050
     Dates: start: 20140822, end: 20140904
  19. EPOGEN [Concomitant]
     Active Substance: ERYTHROPOIETIN
     Route: 050
     Dates: start: 20140630, end: 20140821
  20. EPOGEN [Concomitant]
     Active Substance: ERYTHROPOIETIN
     Route: 050
     Dates: start: 20140917, end: 20140930
  21. EPOGEN [Concomitant]
     Active Substance: ERYTHROPOIETIN
     Route: 050
     Dates: start: 20141107, end: 20141111
  22. EPOGEN [Concomitant]
     Active Substance: ERYTHROPOIETIN
     Route: 050
     Dates: start: 20150121, end: 20150129

REACTIONS (2)
  - Haemoglobin decreased [Unknown]
  - Aplasia pure red cell [Unknown]

NARRATIVE: CASE EVENT DATE: 20150130
